FAERS Safety Report 7125543-1 (Version None)
Quarter: 2010Q4

REPORT INFORMATION
  Report Type: 
  Country: None (occurrence: None)
  Receive Date: 20101129
  Receipt Date: 20071128
  Transmission Date: 20110411
  Serious: Yes (Other)
  Sender: FDA-Public Use
  Company Number: AU-ROCHE-741571

PATIENT

DRUGS (1)
  1. CELLCEPT [Suspect]
     Route: 065

REACTIONS (2)
  - ANAEMIA [None]
  - GASTROINTESTINAL DISORDER [None]
